FAERS Safety Report 9898409 (Version 4)
Quarter: 2014Q1

REPORT INFORMATION
  Report Type: Report from Study
  Country: JP (occurrence: JP)
  Receive Date: 20140214
  Receipt Date: 20140227
  Transmission Date: 20141002
  Serious: Yes (Hospitalization)
  Sender: FDA-Public Use
  Company Number: JP-GLAXOSMITHKLINE-Z0022122A

PATIENT
  Age: 63 Year
  Sex: Male

DRUGS (1)
  1. OFATUMUMAB [Suspect]
     Indication: B-CELL LYMPHOMA
     Dosage: 1000MG CYCLIC
     Route: 042
     Dates: start: 20131016

REACTIONS (1)
  - Bursitis [Recovered/Resolved]
